FAERS Safety Report 5978505-1 (Version None)
Quarter: 2008Q4

REPORT INFORMATION
  Report Type: 
  Country: None (occurrence: None)
  Receive Date: 20081204
  Receipt Date: 20081008
  Transmission Date: 20090506
  Serious: No
  Sender: FDA-Public Use
  Company Number: US-BAYER-200814031BCC

PATIENT
  Sex: Male

DRUGS (3)
  1. ALEVE (CAPLET) [Suspect]
     Indication: TOOTHACHE
     Dosage: TOTAL DAILY DOSE: 220 MG  UNIT DOSE: 220 MG
     Route: 048
     Dates: start: 20081008
  2. TYLENOL (CAPLET) [Suspect]
     Indication: TOOTHACHE
  3. IBUPROFEN TABLETS [Suspect]
     Indication: TOOTHACHE
     Dates: start: 20081004

REACTIONS (1)
  - NAUSEA [None]
